FAERS Safety Report 9494614 (Version 2)
Quarter: 2013Q3

REPORT INFORMATION
  Report Type: Spontaneous
  Country: IS (occurrence: IS)
  Receive Date: 20130903
  Receipt Date: 20130916
  Transmission Date: 20140515
  Serious: Yes (Hospitalization)
  Sender: FDA-Public Use
  Company Number: IS-PFIZER INC-2013250207

PATIENT
  Age: 72 Year
  Sex: Male

DRUGS (6)
  1. ZYVOXID [Suspect]
     Indication: STAPHYLOCOCCAL INFECTION
     Dosage: 600 MG, 2X/DAY
     Dates: start: 20130703, end: 20130712
  2. STALEVO [Concomitant]
  3. SYMMETREL [Concomitant]
  4. SINEMET [Concomitant]
     Dosage: 25 MG/ 100 MG
  5. REQUIP DEPOT [Concomitant]
     Dosage: 8 MG, UNK
  6. DETRUSITOL [Concomitant]

REACTIONS (2)
  - Drug reaction with eosinophilia and systemic symptoms [Recovering/Resolving]
  - Hypersensitivity [Recovering/Resolving]
